FAERS Safety Report 7768484-9 (Version None)
Quarter: 2011Q3

REPORT INFORMATION
  Report Type: 
  Country: None (occurrence: None)
  Receive Date: 20110922
  Receipt Date: 20110603
  Transmission Date: 20111222
  Serious: No
  Sender: FDA-Public Use
  Company Number: US-ASTRAZENECA-2011SE34567

PATIENT
  Age: 14 Year
  Sex: Female
  Weight: 52.6 kg

DRUGS (6)
  1. MELATONIN [Concomitant]
  2. LAMICTAL [Concomitant]
  3. SEROQUEL XR [Suspect]
     Indication: BIPOLAR DISORDER
     Route: 048
  4. LEVOTHYROXINE SODIUM [Concomitant]
  5. LITHOBID [Concomitant]
  6. METFORMIN [Concomitant]
     Indication: DECREASED APPETITE

REACTIONS (4)
  - INSOMNIA [None]
  - DRUG DOSE OMISSION [None]
  - WEIGHT INCREASED [None]
  - VOMITING [None]
